FAERS Safety Report 6011967-2 (Version None)
Quarter: 2008Q4

REPORT INFORMATION
  Report Type: 
  Country: None (occurrence: None)
  Receive Date: 20081218
  Receipt Date: 20081121
  Transmission Date: 20090506
  Serious: No
  Sender: FDA-Public Use
  Company Number: US-ASTRAZENECA-2008UW22689

PATIENT
  Age: 751 Month
  Sex: Female

DRUGS (6)
  1. CRESTOR [Suspect]
     Route: 048
     Dates: start: 20080908
  2. ACCOLATE [Concomitant]
  3. SYMBICORT [Concomitant]
  4. ATACAND [Concomitant]
  5. RHINOCORT [Concomitant]
  6. NEXIUM [Concomitant]

REACTIONS (3)
  - DRUG HYPERSENSITIVITY [None]
  - MUSCULAR WEAKNESS [None]
  - PAIN [None]
